FAERS Safety Report 11241944 (Version 2)
Quarter: 2015Q4

REPORT INFORMATION
  Report Type: Spontaneous
  Country: JP (occurrence: JP)
  Receive Date: 20150706
  Receipt Date: 20151019
  Transmission Date: 20160304
  Serious: Yes (Hospitalization)
  Sender: FDA-Public Use
  Company Number: JP-MYLANLABS-2015M1021310

PATIENT

DRUGS (3)
  1. GEMCITABINE [Suspect]
     Active Substance: GEMCITABINE\GEMCITABINE HYDROCHLORIDE
     Indication: URETERIC CANCER
     Route: 042
  2. PACLITAXEL. [Suspect]
     Active Substance: PACLITAXEL
     Indication: URETERIC CANCER
     Route: 041
  3. CARBOPLATIN INJECTION 150 MG ^NK^ [Suspect]
     Active Substance: CARBOPLATIN
     Indication: URETERIC CANCER
     Route: 041

REACTIONS (4)
  - Hyponatraemia [Recovered/Resolved]
  - Renal disorder [Recovered/Resolved]
  - Inappropriate antidiuretic hormone secretion [Recovered/Resolved]
  - Altered state of consciousness [Recovered/Resolved]
